FAERS Safety Report 10036407 (Version 2)
Quarter: 2014Q2

REPORT INFORMATION
  Report Type: Spontaneous
  Country: MX (occurrence: MX)
  Receive Date: 20140325
  Receipt Date: 20140403
  Transmission Date: 20141212
  Serious: No
  Sender: FDA-Public Use
  Company Number: MX-BRISTOL-MYERS SQUIBB COMPANY-20554796

PATIENT
  Age: 58 Year
  Sex: Female

DRUGS (1)
  1. FORXIGA [Suspect]

REACTIONS (1)
  - Vertigo [Unknown]
